FAERS Safety Report 25835221 (Version 2)
Quarter: 2025Q4

REPORT INFORMATION
  Report Type: Spontaneous
  Country: IN (occurrence: IN)
  Receive Date: 20250923
  Receipt Date: 20251010
  Transmission Date: 20260118
  Serious: Yes (Hospitalization, Other)
  Sender: RANBAXY
  Company Number: IN-MLMSERVICE-20170824-0862110-1

PATIENT
  Age: 22 Year
  Sex: Male

DRUGS (13)
  1. THALIDOMIDE [Interacting]
     Active Substance: THALIDOMIDE
     Indication: Type 2 lepra reaction
     Dosage: 300 MG, DAILY
     Route: 065
  2. PREDNISOLONE [Interacting]
     Active Substance: PREDNISOLONE
     Indication: Type 2 lepra reaction
     Dosage: 60 MG, DAILY
     Route: 048
  3. PREDNISOLONE [Interacting]
     Active Substance: PREDNISOLONE
     Indication: Type 2 lepra reaction
     Dosage: UNK
     Route: 048
  4. WARFARIN [Interacting]
     Active Substance: WARFARIN
     Indication: Product used for unknown indication
     Dosage: 2 MG, DAILY (DAY 14 TO 18)
     Route: 065
  5. WARFARIN [Interacting]
     Active Substance: WARFARIN
     Indication: Product used for unknown indication
     Dosage: 4 MG, DAILY (DAY 18 TO 22)
     Route: 065
  6. WARFARIN [Interacting]
     Active Substance: WARFARIN
     Dosage: 5 MG, DAILY (DAY 1 TO 4)
     Route: 065
  7. WARFARIN [Interacting]
     Active Substance: WARFARIN
     Indication: Product used for unknown indication
     Dosage: 2 MG, DAILY (DAY 22 TO 26)
     Route: 065
  8. WARFARIN [Interacting]
     Active Substance: WARFARIN
     Dosage: 4 MG, DAILY (DAY 4 TO 7)
     Route: 065
  9. AZATHIOPRINE [Interacting]
     Active Substance: AZATHIOPRINE
     Indication: Type 2 lepra reaction
     Dosage: 25 MG, DAILY
     Route: 065
  10. AZATHIOPRINE [Interacting]
     Active Substance: AZATHIOPRINE
     Dosage: 50 MG, DAILY
     Route: 065
  11. DAPSONE [Interacting]
     Active Substance: DAPSONE
     Indication: Leprosy
     Dosage: 100 MG, DAILY
     Route: 065
  12. CLOFAZIMINE [Concomitant]
     Active Substance: CLOFAZIMINE
     Indication: Leprosy
     Dosage: 100 MG, DAILY
     Route: 065
  13. RIFAMPIN [Concomitant]
     Active Substance: RIFAMPIN
     Indication: Leprosy
     Dosage: 600 MG, MONTHLY
     Route: 065

REACTIONS (3)
  - Anticoagulation drug level above therapeutic [Not Recovered/Not Resolved]
  - Deep vein thrombosis [Recovering/Resolving]
  - Drug interaction [Unknown]
